FAERS Safety Report 4552181-7 (Version None)
Quarter: 2004Q4

REPORT INFORMATION
  Report Type: 
  Country: None (occurrence: None)
  Receive Date: 20041217
  Receipt Date: 20040810
  Transmission Date: 20050328
  Serious: No
  Sender: FDA-Public Use
  Company Number: 2004-BP-06150BP

PATIENT
  Age: 73 Year
  Sex: Male

DRUGS (3)
  1. SPIRIVA [Suspect]
     Indication: EMPHYSEMA
     Dosage: 18 MCG (18 MCG, 1 IN 1 D), IH
     Dates: start: 20040725
  2. TEGRETOL [Concomitant]
  3. BENICAR [Concomitant]

REACTIONS (2)
  - MUSCLE SPASMS [None]
  - PNEUMONIA [None]
